FAERS Safety Report 10902274 (Version 1)
Quarter: 2015Q1

REPORT INFORMATION
  Report Type: Spontaneous
  Country: GB (occurrence: GB)
  Receive Date: 20150310
  Receipt Date: 20150310
  Transmission Date: 20150721
  Serious: Yes (Other)
  Sender: FDA-Public Use
  Company Number: GB-PFIZER INC-2015078764

PATIENT
  Age: 72 Year
  Sex: Male
  Weight: 63.5 kg

DRUGS (1)
  1. IBUPROFEN. [Suspect]
     Active Substance: IBUPROFEN
     Indication: INFLAMMATION
     Dosage: 400 MG, 3-4 TIMES PER DAY
     Route: 048
     Dates: start: 20150217, end: 20150219

REACTIONS (3)
  - Dizziness [Recovering/Resolving]
  - Overdose [Recovered/Resolved]
  - Nausea [Recovering/Resolving]

NARRATIVE: CASE EVENT DATE: 201502
